FAERS Safety Report 10444346 (Version 1)
Quarter: 2014Q3

REPORT INFORMATION
  Report Type: Spontaneous
  Country: TR (occurrence: None)
  Receive Date: 20140908
  Receipt Date: 20140908
  Transmission Date: 20150326
  Serious: Yes (Hospitalization, Other)
  Sender: FDA-Public Use
  Company Number: 2014SCAL000069

PATIENT
  Age: 65 Year
  Sex: Female

DRUGS (1)
  1. DULOXETINE HYDROCHLORIDE (DULOXETINE HYDROCHLORIDE) [Suspect]
     Active Substance: DULOXETINE HYDROCHLORIDE
     Indication: ANXIETY DISORDER

REACTIONS (10)
  - Bipolar disorder [None]
  - Irritability [None]
  - Logorrhoea [None]
  - Psychomotor hyperactivity [None]
  - Anger [None]
  - Paranoia [None]
  - Dysphoria [None]
  - Aggression [None]
  - Mania [None]
  - Insomnia [None]
